FAERS Safety Report 7366695-8 (Version None)
Quarter: 2011Q1

REPORT INFORMATION
  Report Type: 
  Country: None (occurrence: None)
  Receive Date: 20110322
  Receipt Date: 20110311
  Transmission Date: 20110831
  Serious: Yes (Hospitalization)
  Sender: FDA-Public Use
  Company Number: US-AMGEN-USASP2011013707

PATIENT
  Age: 56 Year
  Sex: Female

DRUGS (1)
  1. ENBREL [Suspect]
     Indication: RHEUMATOID ARTHRITIS
     Dosage: 50 MG, QWK
     Dates: start: 20000101

REACTIONS (6)
  - RHEUMATOID ARTHRITIS [None]
  - SPINAL OSTEOARTHRITIS [None]
  - NERVE COMPRESSION [None]
  - SPINAL CORD DISORDER [None]
  - HEADACHE [None]
  - OSTEOMALACIA [None]
